FAERS Safety Report 13822081 (Version 3)
Quarter: 2017Q4

REPORT INFORMATION
  Report Type: Spontaneous
  Country: US (occurrence: US)
  Receive Date: 20170801
  Receipt Date: 20171103
  Transmission Date: 20180320
  Serious: No
  Sender: FDA-Public Use
  Company Number: US-PFIZER INC-2017330877

PATIENT
  Age: 29 Year
  Sex: Male

DRUGS (1)
  1. GENOTROPIN MQ [Suspect]
     Active Substance: SOMATROPIN
     Dosage: 0.2 MG, DAILY (SIX DAY WEEKLY)
     Route: 058
     Dates: start: 201707

REACTIONS (4)
  - Injection site mass [Unknown]
  - Injection site inflammation [Unknown]
  - Skin disorder [Unknown]
  - Drug ineffective [Unknown]
